FAERS Safety Report 5273194-6 (Version None)
Quarter: 2007Q1

REPORT INFORMATION
  Report Type: 
  Country: None (occurrence: None)
  Receive Date: 20070322
  Receipt Date: 20070315
  Transmission Date: 20070707
  Serious: Yes (Hospitalization)
  Sender: FDA-Public Use
  Company Number: IT-PFIZER INC-2007020753

PATIENT
  Sex: Female

DRUGS (5)
  1. GENOTROPIN [Suspect]
     Indication: HYPOPITUITARISM
     Route: 058
     Dates: start: 19981201, end: 20070221
  2. ETHINYL ESTRADIOL TAB [Concomitant]
     Dosage: DAILY DOSE:.0125MG
     Route: 048
  3. EUTIROX [Concomitant]
     Route: 048
  4. HYDROCORTISONE [Concomitant]
     Route: 048
  5. MINIRIN/DDAVP [Concomitant]
     Route: 055

REACTIONS (2)
  - ABDOMINAL PAIN [None]
  - PANCREATITIS ACUTE [None]
